FAERS Safety Report 4896763-1 (Version None)
Quarter: 2005Q4

REPORT INFORMATION
  Report Type: 
  Country: None (occurrence: None)
  Receive Date: 20051223
  Receipt Date: 20050923
  Transmission Date: 20060501
  Serious: Yes (Hospitalization)
  Sender: FDA-Public Use
  Company Number: CHPA2005US02072

PATIENT
  Age: 72 Year
  Sex: Female
  Weight: 63.5 kg

DRUGS (3)
  1. TRANSDERM SCOP [Suspect]
     Indication: MOTION SICKNESS
     Dosage: TRANSDERMAL
     Route: 062
     Dates: start: 20050528
  2. LIPITOR /NET/(ATORVASTATIN CALCIUM) [Concomitant]
  3. SYNTHROID [Concomitant]

REACTIONS (9)
  - BEDRIDDEN [None]
  - DECREASED APPETITE [None]
  - DIZZINESS [None]
  - DRUG WITHDRAWAL SYNDROME [None]
  - LABYRINTHITIS [None]
  - MALAISE [None]
  - NAUSEA [None]
  - RETCHING [None]
  - VOMITING [None]
